FAERS Safety Report 7038269-X (Version None)
Quarter: 2010Q4

REPORT INFORMATION
  Report Type: 
  Country: None (occurrence: None)
  Receive Date: 20101011
  Receipt Date: 20091215
  Transmission Date: 20110411
  Serious: No
  Sender: FDA-Public Use
  Company Number: US-PFIZER INC-2009311141

PATIENT
  Age: 30 Year
  Sex: Female

DRUGS (4)
  1. NEURONTIN [Suspect]
     Indication: NEURALGIA
     Dosage: 600 MG, 3X/DAY
     Route: 048
  2. NEURONTIN [Suspect]
     Dosage: 300 MG, 3X/DAY
     Route: 048
     Dates: start: 20090701
  3. LEXAPRO [Concomitant]
     Dosage: UNK
  4. MONTELUKAST SODIUM [Concomitant]
     Indication: ASTHMA
     Dosage: UNK

REACTIONS (2)
  - RASH GENERALISED [None]
  - URTICARIA [None]
